FAERS Safety Report 14454680 (Version 3)
Quarter: 2018Q1

REPORT INFORMATION
  Report Type: Spontaneous
  Country: US (occurrence: US)
  Receive Date: 20180129
  Receipt Date: 20180327
  Transmission Date: 20180509
  Serious: Yes (Hospitalization, Other)
  Sender: FDA-Public Use
  Company Number: US-DSJP-DSU-2017-141255

PATIENT

DRUGS (2)
  1. BENICAR [Suspect]
     Active Substance: OLMESARTAN MEDOXOMIL
     Indication: PRODUCT USED FOR UNKNOWN INDICATION
     Dosage: 20 MG, QD
     Route: 048
  2. BENICAR HCT [Suspect]
     Active Substance: HYDROCHLOROTHIAZIDE\OLMESARTAN MEDOXOMIL
     Indication: PRODUCT USED FOR UNKNOWN INDICATION
     Dosage: 20/12.5 MG, QD
     Route: 048
     Dates: end: 20170801

REACTIONS (10)
  - Gastrooesophageal reflux disease [Not Recovered/Not Resolved]
  - Diverticulum intestinal [Not Recovered/Not Resolved]
  - Urticaria [Unknown]
  - Constipation [Not Recovered/Not Resolved]
  - Pancreatitis [Unknown]
  - Ileus [Unknown]
  - Sprue-like enteropathy [Recovered/Resolved]
  - Large intestine polyp [Recovered/Resolved]
  - Haemorrhoids [Unknown]
  - Rash [Unknown]

NARRATIVE: CASE EVENT DATE: 20100222
